FAERS Safety Report 5900046-8 (Version None)
Quarter: 2008Q3

REPORT INFORMATION
  Report Type: 
  Country: None (occurrence: None)
  Receive Date: 20080925
  Receipt Date: 20080925
  Transmission Date: 20090109
  Serious: Yes (Hospitalization)
  Sender: FDA-Public Use
  Company Number: None

PATIENT
  Age: 71 Year
  Sex: Female
  Weight: 79 kg

DRUGS (3)
  1. DALTEPARIN SODIUM [Suspect]
     Indication: THROMBOSIS PROPHYLAXIS
     Dosage: 5000 UNITS DAILY SQ
     Route: 058
     Dates: start: 20080815, end: 20080819
  2. ZYVOX [Suspect]
     Indication: PNEUMONIA
     Dosage: 600 MG Q 12 HOURS IV
     Route: 042
     Dates: start: 20080817, end: 20080819
  3. ZYVOX [Suspect]
     Indication: SEPSIS
     Dosage: 600 MG Q 12 HOURS IV
     Route: 042
     Dates: start: 20080817, end: 20080819

REACTIONS (4)
  - RASH [None]
  - RENAL FAILURE ACUTE [None]
  - SEPSIS [None]
  - THROMBOCYTOPENIA [None]
